FAERS Safety Report 8577430-X (Version None)
Quarter: 2012Q3

REPORT INFORMATION
  Report Type: 
  Country: None (occurrence: None)
  Receive Date: 20120725
  Receipt Date: 20120713
  Transmission Date: 20120928
  Serious: Yes (Disabling, Other)
  Sender: FDA-Public Use
  Company Number: 2012MA008879

PATIENT
  Sex: Female

DRUGS (3)
  1. PREDNISOLONE TAB [Suspect]
     Indication: SARCOIDOSIS
     Dosage: 10 MG;PO
     Route: 048
     Dates: start: 20051120
  2. CARBAMAZEPINE [Suspect]
     Indication: EPILEPSY
     Dosage: 150 MG;PO
     Route: 048
     Dates: start: 20111109
  3. DICLOFENAC SODIUM [Suspect]
     Indication: OSTEOPOROSIS
     Dosage: 150 MG;PO
     Route: 048
     Dates: start: 20051110

REACTIONS (2)
  - IMPAIRED WORK ABILITY [None]
  - GAIT DISTURBANCE [None]
